FAERS Safety Report 4448200-9 (Version None)
Quarter: 2004Q3

REPORT INFORMATION
  Report Type: 
  Country: None (occurrence: None)
  Receive Date: 20040913
  Receipt Date: 20040817
  Transmission Date: 20050211
  Serious: Yes (Hospitalization)
  Sender: FDA-Public Use
  Company Number: DE-GLAXOSMITHKLINE-B0340006B

PATIENT
  Age: 60 Year
  Sex: Male
  Weight: 100.4 kg

DRUGS (2)
  1. TOPOTECAN [Suspect]
     Dosage: 1MGM2 PER DAY
     Route: 042
     Dates: start: 20040809, end: 20040813
  2. CISPLATIN [Suspect]
     Dosage: 70MGM2 PER DAY
     Route: 042
     Dates: start: 20040813, end: 20040813

REACTIONS (4)
  - ANAEMIA [None]
  - ANGINA PECTORIS [None]
  - CHEST PAIN [None]
  - RENAL FAILURE ACUTE [None]
